FAERS Safety Report 5842718-X (Version None)
Quarter: 2008Q3

REPORT INFORMATION
  Report Type: 
  Country: None (occurrence: None)
  Receive Date: 20080808
  Receipt Date: 20080801
  Transmission Date: 20090109
  Serious: Yes (Death)
  Sender: FDA-Public Use
  Company Number: 2008US001365

PATIENT
  Age: 51 Year
  Sex: Male

DRUGS (1)
  1. PROGRAF [Suspect]
     Indication: LIVER TRANSPLANT
     Dosage: 1 MG, BID,
     Dates: start: 20030609, end: 20080503

REACTIONS (4)
  - CHRONIC HEPATIC FAILURE [None]
  - SUBSTANCE ABUSE [None]
  - TREATMENT NONCOMPLIANCE [None]
  - WERNICKE'S ENCEPHALOPATHY [None]
